FAERS Safety Report 10247356 (Version 1)
Quarter: 2014Q2

REPORT INFORMATION
  Report Type: Spontaneous
  Country: US (occurrence: US)
  Receive Date: 20140619
  Receipt Date: 20140619
  Transmission Date: 20141212
  Serious: No
  Sender: FDA-Public Use
  Company Number: US-PFIZER INC-2014164841

PATIENT
  Age: 62 Year
  Sex: Female
  Weight: 53.97 kg

DRUGS (5)
  1. PRISTIQ [Suspect]
     Indication: HYPOMANIA
     Dosage: 50 MG, DAILY
     Dates: end: 201402
  2. PRISTIQ [Suspect]
     Indication: BIPOLAR DISORDER
  3. GLIPIZIDE [Concomitant]
     Indication: GLUCOSE TOLERANCE IMPAIRED
     Dosage: 5 MG, DAILY
  4. METFORMIN HYDROCHLORIDE [Concomitant]
     Indication: GLUCOSE TOLERANCE IMPAIRED
     Dosage: 500 MG, DAILY
  5. METFORMIN HYDROCHLORIDE [Concomitant]
     Dosage: 500 MG, 2X/DAY

REACTIONS (3)
  - Dyspepsia [Not Recovered/Not Resolved]
  - Fatigue [Not Recovered/Not Resolved]
  - Medication residue present [Not Recovered/Not Resolved]
